FAERS Safety Report 8589405-5 (Version None)
Quarter: 2012Q3

REPORT INFORMATION
  Report Type: 
  Country: None (occurrence: None)
  Receive Date: 20120813
  Receipt Date: 20120807
  Transmission Date: 20120928
  Serious: Yes (Other)
  Sender: FDA-Public Use
  Company Number: DE-PFIZER INC-2012191648

PATIENT
  Age: 66 Year
  Sex: Male
  Weight: 90 kg

DRUGS (1)
  1. AMPICILLIN AND SULBACTAM [Suspect]
     Indication: PNEUMONIA
     Dosage: 2 + 1G
     Route: 042
     Dates: start: 20120112, end: 20120114

REACTIONS (1)
  - SUPRAVENTRICULAR TACHYCARDIA [None]
